FAERS Safety Report 5718445-6 (Version None)
Quarter: 2008Q2

REPORT INFORMATION
  Report Type: 
  Country: None (occurrence: None)
  Receive Date: 20080425
  Receipt Date: 20080414
  Transmission Date: 20081010
  Serious: Yes (Other)
  Sender: FDA-Public Use
  Company Number: US-JNJFOC-20080404360

PATIENT
  Sex: Female
  Weight: 49.9 kg

DRUGS (4)
  1. TOPAMAX [Suspect]
     Indication: MIGRAINE PROPHYLAXIS
     Route: 048
  2. FOSAMAX [Concomitant]
     Indication: OSTEOPOROSIS
  3. NASONEX [Concomitant]
     Indication: MULTIPLE ALLERGIES
  4. ASTELIN [Concomitant]
     Indication: MULTIPLE ALLERGIES

REACTIONS (5)
  - ALOPECIA [None]
  - EYE PAIN [None]
  - GLOSSODYNIA [None]
  - MUSCLE TWITCHING [None]
  - RETINAL TEAR [None]
